FAERS Safety Report 11245671 (Version 4)
Quarter: 2016Q3

REPORT INFORMATION
  Report Type: Spontaneous
  Country: US (occurrence: US)
  Receive Date: 20150707
  Receipt Date: 20160815
  Transmission Date: 20161109
  Serious: Yes (Other)
  Sender: FDA-Public Use
  Company Number: US-BAYER-2015-368720

PATIENT
  Sex: Female
  Weight: 134.69 kg

DRUGS (8)
  1. AVELOX [Suspect]
     Active Substance: MOXIFLOXACIN HYDROCHLORIDE
     Indication: NASOPHARYNGITIS
     Dosage: 400 MG, UNK
     Dates: start: 20060919
  2. VITAMIN B12 [Concomitant]
     Active Substance: CYANOCOBALAMIN
     Indication: VITAMIN B12 DEFICIENCY
     Dosage: UNK
     Dates: start: 2015
  3. NEURONTIN [Concomitant]
     Active Substance: GABAPENTIN
     Indication: NERVE INJURY
     Dosage: 300 MG, TID
  4. XANAX [Concomitant]
     Active Substance: ALPRAZOLAM
     Indication: ANXIETY
  5. LEVAQUIN [Suspect]
     Active Substance: LEVOFLOXACIN
     Indication: RASH
     Dosage: UNK
     Dates: start: 20061004
  6. AMOXICILLIN. [Concomitant]
     Active Substance: AMOXICILLIN
     Indication: PULMONARY CONGESTION
     Dosage: UNK
     Dates: start: 1980, end: 201606
  7. XANAX [Concomitant]
     Active Substance: ALPRAZOLAM
     Indication: DEPRESSION
     Dosage: UNK
     Dates: start: 2006
  8. IBUPROFEN. [Concomitant]
     Active Substance: IBUPROFEN
     Indication: PAIN
     Dosage: UNK
     Dates: start: 2006

REACTIONS (13)
  - Neuropathy peripheral [None]
  - Ulnar nerve injury [None]
  - Injury [None]
  - Pain [None]
  - Skin injury [None]
  - Depression [None]
  - Nervous system disorder [None]
  - Anxiety [None]
  - Musculoskeletal injury [None]
  - Emotional distress [None]
  - Cardiovascular disorder [None]
  - Median nerve injury [None]
  - Mental disorder [None]
